FAERS Safety Report 18645127 (Version 9)
Quarter: 2021Q3

REPORT INFORMATION
  Report Type: Report from Study
  Country: US (occurrence: US)
  Receive Date: 20201221
  Receipt Date: 20210824
  Transmission Date: 20211014
  Serious: No
  Sender: FDA-Public Use
  Company Number: NVSC2020US337820

PATIENT
  Sex: Female

DRUGS (2)
  1. COSENTYX [Suspect]
     Active Substance: SECUKINUMAB
     Indication: ANKYLOSING SPONDYLITIS
     Dosage: 150 MG, QW
     Route: 058
     Dates: start: 20201210
  2. COSENTYX [Suspect]
     Active Substance: SECUKINUMAB
     Dosage: UNK, UNKNOWN
     Route: 065
     Dates: start: 202105

REACTIONS (5)
  - Injection site pruritus [Not Recovered/Not Resolved]
  - Injection site bruising [Recovering/Resolving]
  - Pain [Not Recovered/Not Resolved]
  - Contusion [Recovering/Resolving]
  - Injection site pain [Recovering/Resolving]
